FAERS Safety Report 22172790 (Version 1)
Quarter: 2023Q2

REPORT INFORMATION
  Report Type: Spontaneous
  Country: US (occurrence: None)
  Receive Date: 20230403
  Receipt Date: 20230403
  Transmission Date: 20230722
  Serious: Yes (Other)
  Sender: FDA-Public Use
  Company Number: None

PATIENT
  Age: 79 Year
  Sex: Female
  Weight: 76.5 kg

DRUGS (12)
  1. HYDROCORTISONE [Suspect]
     Active Substance: HYDROCORTISONE
     Indication: Adrenal insufficiency
     Dosage: OTHER QUANTITY : 5 TABLET(S);?OTHER FREQUENCY : UP TO 100MG DAILY;?
     Route: 048
     Dates: start: 20230319, end: 20230403
  2. LISINOPRIL, [Concomitant]
  3. LOZOL [Concomitant]
     Active Substance: INDAPAMIDE
  4. SYNTHROID [Concomitant]
     Active Substance: LEVOTHYROXINE SODIUM
  5. PLAVIX [Concomitant]
  6. CORTEF [Concomitant]
     Active Substance: HYDROCORTISONE
  7. B12 INJECTION [Concomitant]
  8. TYLENOL #3 [Concomitant]
  9. POTASSIUM [Concomitant]
  10. VITAMIN D NOS [Concomitant]
     Active Substance: VITAMIN D NOS
  11. IRON [Concomitant]
  12. MAGNESIUM [Concomitant]
     Active Substance: MAGNESIUM

REACTIONS (17)
  - Product substitution issue [None]
  - Asthenia [None]
  - Gastric disorder [None]
  - Oropharyngeal pain [None]
  - Oral pain [None]
  - Oral mucosal exfoliation [None]
  - Oropharyngeal pain [None]
  - Odynophagia [None]
  - Dysgeusia [None]
  - Fatigue [None]
  - Confusional state [None]
  - Cognitive disorder [None]
  - Nausea [None]
  - Diarrhoea [None]
  - Abdominal pain [None]
  - Facial spasm [None]
  - Product solubility abnormal [None]

NARRATIVE: CASE EVENT DATE: 20230319
